FAERS Safety Report 18899729 (Version 1)
Quarter: 2021Q1

REPORT INFORMATION
  Report Type: Spontaneous
  Country: FR (occurrence: FR)
  Receive Date: 20210216
  Receipt Date: 20210216
  Transmission Date: 20210420
  Serious: Yes (Death, Other)
  Sender: FDA-Public Use
  Company Number: FR-AMNEAL PHARMACEUTICALS-2021-AMRX-00334

PATIENT
  Age: 47 Year
  Sex: Male

DRUGS (1)
  1. ALBENZA [Suspect]
     Active Substance: ALBENDAZOLE
     Indication: FILARIASIS
     Dosage: 400 MILLIGRAM, DAILY
     Route: 065

REACTIONS (10)
  - Confusional state [Unknown]
  - Decreased appetite [Unknown]
  - Hyperleukocytosis [Unknown]
  - Blood creatine phosphokinase increased [Unknown]
  - Encephalopathy [Fatal]
  - Myalgia [Unknown]
  - Pyrexia [Unknown]
  - Coma [Unknown]
  - Eosinophilia [Unknown]
  - Asthenia [Unknown]
